FAERS Safety Report 7563755-3 (Version None)
Quarter: 2011Q2

REPORT INFORMATION
  Report Type: 
  Country: None (occurrence: None)
  Receive Date: 20110622
  Receipt Date: 20110613
  Transmission Date: 20111010
  Serious: Yes (Hospitalization)
  Sender: FDA-Public Use
  Company Number: US-BRISTOL-MYERS SQUIBB COMPANY-15171333

PATIENT
  Age: 62 Year
  Sex: Male

DRUGS (2)
  1. PLACEBO [Suspect]
     Indication: THROMBOSIS PROPHYLAXIS
     Dosage: INTERRUPTED ON 16JUN10
     Route: 048
     Dates: start: 20091228
  2. WARFARIN SODIUM [Suspect]
     Indication: THROMBOSIS PROPHYLAXIS
     Dosage: INTERRUPTED ON 16-JUN10,3MG ALT WITH 4MG.
     Route: 048
     Dates: start: 20091228

REACTIONS (1)
  - ATRIAL FIBRILLATION [None]
